FAERS Safety Report 4815042-1 (Version None)
Quarter: 2005Q4

REPORT INFORMATION
  Report Type: 
  Country: None (occurrence: None)
  Receive Date: 20051026
  Receipt Date: 20051006
  Transmission Date: 20060501
  Serious: Yes (Hospitalization)
  Sender: FDA-Public Use
  Company Number: FR_051007275

PATIENT
  Age: 68 Year
  Sex: Female

DRUGS (4)
  1. FORTEO [Suspect]
     Indication: OSTEOPOROSIS
     Dosage: 20 UG/1 DAY
     Dates: start: 20050912
  2. ATORVASTATIN CALCIUM [Concomitant]
  3. KARDEGIC (ACETYLCYATE LYSINE) [Concomitant]
  4. LANSOPRAZOLE [Concomitant]

REACTIONS (5)
  - CHEST PAIN [None]
  - DISCOMFORT [None]
  - DYSPEPSIA [None]
  - HYPERTENSION [None]
  - RESPIRATORY DISORDER [None]
